FAERS Safety Report 9542710 (Version 2)
Quarter: 2013Q3

REPORT INFORMATION
  Report Type: Spontaneous
  Country: JP (occurrence: JP)
  Receive Date: 20130923
  Receipt Date: 20130923
  Transmission Date: 20140515
  Serious: Yes (Hospitalization)
  Sender: FDA-Public Use
  Company Number: JP-TAKEDA-TPA2013A04734

PATIENT
  Age: 94 Year
  Sex: Male

DRUGS (20)
  1. FEBURIC [Suspect]
     Indication: HYPERURICAEMIA
     Route: 048
     Dates: end: 20130326
  2. IMURAN /00001501/ [Interacting]
     Indication: COLITIS ULCERATIVE
     Route: 048
     Dates: start: 20130312, end: 20130326
  3. KREMEZIN [Concomitant]
     Indication: RENAL FAILURE CHRONIC
     Route: 048
  4. ADALAT [Concomitant]
     Indication: HYPERTENSION
     Route: 048
  5. CRESTOR                            /01588602/ [Concomitant]
     Indication: HYPERLIPIDAEMIA
     Route: 048
  6. PARIET [Concomitant]
     Indication: GASTRITIS
     Route: 048
  7. LASIX                              /00032601/ [Concomitant]
     Indication: RENAL FAILURE CHRONIC
     Route: 048
  8. ARTIST [Concomitant]
     Indication: HYPERTENSION
     Route: 048
  9. CALBLOCK [Concomitant]
     Indication: HYPERTENSION
     Route: 048
  10. PLETAAL [Concomitant]
     Indication: PRODUCT USED FOR UNKNOWN INDICATION
     Route: 048
  11. OLMETEC [Concomitant]
     Indication: HYPERTENSION
     Route: 048
  12. OLMETEC [Concomitant]
     Route: 048
  13. PENTASA [Concomitant]
     Indication: COLITIS ULCERATIVE
     Route: 048
  14. SALAZOPYRIN [Concomitant]
     Indication: COLITIS ULCERATIVE
     Route: 054
  15. MIYA BM [Concomitant]
     Indication: COLITIS ULCERATIVE
     Route: 048
  16. URIEF [Concomitant]
     Indication: BENIGN PROSTATIC HYPERPLASIA
     Route: 048
  17. AVOLVE [Concomitant]
     Indication: BENIGN PROSTATIC HYPERPLASIA
     Route: 048
  18. PRORENAL [Concomitant]
     Indication: PRODUCT USED FOR UNKNOWN INDICATION
     Route: 048
  19. ALDACTONE A [Concomitant]
     Indication: HYPERTENSION
     Route: 048
  20. ALDACTONE A [Concomitant]
     Indication: RENAL FAILURE CHRONIC

REACTIONS (2)
  - Drug interaction [Recovered/Resolved]
  - Pancytopenia [Recovered/Resolved]
